FAERS Safety Report 6822455-5 (Version None)
Quarter: 2010Q3

REPORT INFORMATION
  Report Type: 
  Country: None (occurrence: None)
  Receive Date: 20100708
  Receipt Date: 20100629
  Transmission Date: 20110219
  Serious: Yes (Other)
  Sender: FDA-Public Use
  Company Number: ES-ABBOTT-10P-144-0654063-00

PATIENT
  Age: 54 Year
  Sex: Female

DRUGS (9)
  1. HUMIRA [Suspect]
     Indication: RHEUMATOID ARTHRITIS
     Dates: start: 20070208
  2. AZATHIOPRINE [Concomitant]
     Indication: RHEUMATOID ARTHRITIS
  3. HIDROCLOROQUINE [Concomitant]
     Indication: RHEUMATOID ARTHRITIS
  4. CLOROQUINE [Concomitant]
     Indication: RHEUMATOID ARTHRITIS
  5. CYCLOPHOSPHAMIDE [Concomitant]
     Indication: RHEUMATOID ARTHRITIS
  6. CYCLOSPORINE [Concomitant]
     Indication: RHEUMATOID ARTHRITIS
  7. D-PENICILLAMINE [Concomitant]
     Indication: RHEUMATOID ARTHRITIS
  8. LEFLUNOMIDE [Concomitant]
     Indication: RHEUMATOID ARTHRITIS
  9. METHOTREXATE [Concomitant]
     Indication: RHEUMATOID ARTHRITIS

REACTIONS (1)
  - PULMONARY EMBOLISM [None]
